FAERS Safety Report 22212472 (Version 2)
Quarter: 2023Q2

REPORT INFORMATION
  Report Type: Spontaneous
  Country: US (occurrence: US)
  Receive Date: 20230414
  Receipt Date: 20230418
  Transmission Date: 20230721
  Serious: Yes (Other)
  Sender: FDA-Public Use
  Company Number: US-PFIZER INC-PV202300067454

PATIENT
  Age: 65 Year
  Sex: Female

DRUGS (4)
  1. EUCRISA [Suspect]
     Active Substance: CRISABOROLE
     Indication: Eczema eyelids
     Dosage: UNK, 2X/DAY (DIRECTIONS FOR USE APPLY THINLY TO EYELIDS 60 G TUBE)
     Route: 061
  2. EUCRISA [Suspect]
     Active Substance: CRISABOROLE
     Indication: Eczema eyelids
  3. EUCRISA [Suspect]
     Active Substance: CRISABOROLE
     Indication: Dermatitis atopic
  4. PARAFFIN [Concomitant]
     Active Substance: PARAFFIN
     Indication: Blepharitis
     Dosage: UNK
     Route: 061

REACTIONS (2)
  - Myasthenia gravis [Unknown]
  - Application site pain [Unknown]
